FAERS Safety Report 10182117 (Version 1)
Quarter: 2014Q2

REPORT INFORMATION
  Report Type: Spontaneous
  Country: US (occurrence: US)
  Receive Date: 20140520
  Receipt Date: 20140520
  Transmission Date: 20141212
  Serious: No
  Sender: FDA-Public Use
  Company Number: US-009507513-1404USA015164

PATIENT
  Age: 26 Year
  Sex: Female
  Weight: 49.89 kg

DRUGS (3)
  1. NUVARING [Suspect]
     Indication: OVARIAN CYST
     Dosage: UNK
     Dates: start: 20130412
  2. NUVARING [Suspect]
     Indication: CONTRACEPTION
  3. PRILOSEC [Concomitant]
     Route: 048

REACTIONS (2)
  - Vaginal discharge [Unknown]
  - Nausea [Unknown]
